FAERS Safety Report 6497581-3 (Version None)
Quarter: 2009Q4

REPORT INFORMATION
  Report Type: 
  Country: None (occurrence: None)
  Receive Date: 20091215
  Receipt Date: 20091204
  Transmission Date: 20100525
  Serious: No
  Sender: FDA-Public Use
  Company Number: US-JNJFOC-20091202474

PATIENT
  Sex: Male
  Weight: 117.94 kg

DRUGS (10)
  1. DURAGESIC-100 [Suspect]
     Indication: INTERVERTEBRAL DISC DEGENERATION
     Dosage: NDC#: 50458-094-05
     Route: 062
  2. DURAGESIC-100 [Suspect]
     Dosage: NDC#: 50458-094-05
     Route: 062
  3. TRICOR [Concomitant]
     Indication: BLOOD TRIGLYCERIDES
     Route: 048
  4. LISINOPRIL [Concomitant]
     Indication: RENAL DISORDER
     Route: 048
  5. CRESTOR [Concomitant]
     Indication: BLOOD CHOLESTEROL
     Route: 048
  6. METFORMIN HCL [Concomitant]
     Indication: BLOOD GLUCOSE ABNORMAL
     Route: 048
  7. SOTALOL HCL [Concomitant]
     Indication: ARRHYTHMIA
     Route: 048
  8. L-THYROXIN [Concomitant]
     Indication: THYROID DISORDER
     Route: 048
  9. KLONOPIN [Concomitant]
     Indication: ANXIETY
     Route: 048
  10. LOVAZA [Concomitant]
     Indication: FATTY ACID DEFICIENCY
     Route: 048

REACTIONS (2)
  - DRUG DOSE OMISSION [None]
  - PRURITUS GENERALISED [None]
